FAERS Safety Report 5795075-1 (Version None)
Quarter: 2008Q2

REPORT INFORMATION
  Report Type: 
  Country: None (occurrence: None)
  Receive Date: 20080630
  Receipt Date: 20080403
  Transmission Date: 20081010
  Serious: Yes (Other)
  Sender: FDA-Public Use
  Company Number: US-BRISTOL-MYERS SQUIBB COMPANY-14131726

PATIENT
  Age: 66 Year
  Sex: Female

DRUGS (12)
  1. ORENCIA [Suspect]
     Indication: RHEUMATOID ARTHRITIS
     Dosage: THERAPYDATES:JAN08;3RD INFUSION:15MAR08,NEXT INFU:15APR08.
     Route: 042
     Dates: start: 20080101
  2. INSULIN [Concomitant]
  3. VITAMIN A [Concomitant]
  4. OS-CAL [Concomitant]
  5. SYNTHROID [Concomitant]
  6. POTASSIUM CHLORIDE [Concomitant]
  7. PREDNISOLONE [Concomitant]
  8. HYDROCODONE [Concomitant]
  9. FUROSEMIDE [Concomitant]
  10. METOPROLOL SUCCINATE [Concomitant]
  11. GLIPIZIDE [Concomitant]
  12. ALPRAZOLAM [Concomitant]

REACTIONS (2)
  - BLADDER NEOPLASM [None]
  - STOMATITIS [None]
